FAERS Safety Report 12439049 (Version 1)
Quarter: 2016Q2

REPORT INFORMATION
  Report Type: Report from Study
  Country: CA (occurrence: CA)
  Receive Date: 20160606
  Receipt Date: 20160606
  Transmission Date: 20160815
  Serious: Yes (Other)
  Sender: FDA-Public Use
  Company Number: CA-009507513-1606CAN000712

PATIENT
  Age: 68 Year
  Sex: Male
  Weight: 105 kg

DRUGS (1)
  1. PEMBROLIZUMAB. [Suspect]
     Active Substance: PEMBROLIZUMAB
     Indication: MALIGNANT MELANOMA
     Dosage: 210 MG, Q3W, STRENGTH: 2MG/KG
     Route: 042
     Dates: start: 20160531

REACTIONS (4)
  - Somnolence [Unknown]
  - Neutropenia [Unknown]
  - Routine health maintenance [Unknown]
  - Fatigue [Unknown]

NARRATIVE: CASE EVENT DATE: 20160531
